FAERS Safety Report 25547381 (Version 1)
Quarter: 2025Q3

REPORT INFORMATION
  Report Type: Spontaneous
  Country: EU (occurrence: EU)
  Receive Date: 20250714
  Receipt Date: 20250714
  Transmission Date: 20251020
  Serious: Yes (Other)
  Sender: CHEPLAPHARM
  Company Number: None

PATIENT
  Age: 45 Year
  Sex: Female

DRUGS (4)
  1. QUETIAPINE [Suspect]
     Active Substance: QUETIAPINE
     Indication: Suicidal ideation
     Route: 048
     Dates: start: 20250527, end: 20250527
  2. VENLAFAXINE HYDROCHLORIDE [Suspect]
     Active Substance: VENLAFAXINE HYDROCHLORIDE
     Indication: Suicidal ideation
     Route: 048
     Dates: start: 20250527, end: 20250527
  3. QUETIAPINE FUMARATE [Suspect]
     Active Substance: QUETIAPINE FUMARATE
     Indication: Suicidal ideation
     Route: 048
     Dates: start: 20250527, end: 20250527
  4. LAMICTAL [Suspect]
     Active Substance: LAMOTRIGINE
     Indication: Suicidal ideation
     Route: 048
     Dates: start: 20250527, end: 20250527

REACTIONS (6)
  - Suicide attempt [Unknown]
  - Unresponsive to stimuli [Unknown]
  - Miosis [Unknown]
  - Blood pressure diastolic decreased [Unknown]
  - Oxygen saturation decreased [Unknown]
  - Intentional overdose [Unknown]

NARRATIVE: CASE EVENT DATE: 20250527
